FAERS Safety Report 9695570 (Version 2)
Quarter: 2013Q4

REPORT INFORMATION
  Report Type: Report from Study
  Country: JP (occurrence: JP)
  Receive Date: 20131119
  Receipt Date: 20131203
  Transmission Date: 20140711
  Serious: Yes (Hospitalization)
  Sender: FDA-Public Use
  Company Number: JP-PFIZER INC-2013322750

PATIENT
  Age: 70 Year
  Sex: Male
  Weight: 61.3 kg

DRUGS (12)
  1. AXITINIB [Suspect]
     Indication: RENAL CELL CARCINOMA
     Dosage: 5 MG, 2X/DAY
     Route: 048
     Dates: start: 20130121, end: 20130207
  2. AXITINIB [Suspect]
     Dosage: 7 MG, 2X/DAY
     Route: 048
     Dates: start: 20130208, end: 20130609
  3. AXITINIB [Suspect]
     Dosage: 5 MG, 2X/DAY
     Route: 048
     Dates: start: 20130625, end: 20130824
  4. AXITINIB [Suspect]
     Dosage: 3 MG, 2X/DAY
     Route: 048
     Dates: start: 20131007
  5. BAYASPIRIN [Suspect]
     Indication: MYOCARDIAL INFARCTION
     Dosage: 100 MG, 1X/DAY
     Route: 048
     Dates: start: 20120723, end: 20130614
  6. BAYASPIRIN [Suspect]
     Dosage: 100 MG, 1X/DAY
     Route: 048
     Dates: start: 20130621
  7. PLAVIX [Suspect]
     Indication: MYOCARDIAL INFARCTION
     Dosage: 75 MG, 1X/DAY
     Route: 048
     Dates: start: 20120723, end: 20130614
  8. PLAVIX [Suspect]
     Dosage: 75 MG, 1X/DAY
     Route: 048
     Dates: start: 20130621
  9. OLMETEC [Concomitant]
     Indication: HYPERTENSION
     Dosage: 20 MG, 1X/DAY
     Route: 048
     Dates: start: 20120723, end: 20130614
  10. LASIX [Concomitant]
     Indication: HYPERTENSION
     Dosage: 20 MG, 2X/DAY
     Route: 048
     Dates: start: 20120723
  11. TAKEPRON [Concomitant]
     Indication: GASTRITIS
     Dosage: 30 MG, 1X/DAY
     Route: 048
     Dates: start: 20120724
  12. CRESTOR [Concomitant]
     Indication: LIPIDS ABNORMAL
     Dosage: 5 MG, 1X/DAY
     Route: 048
     Dates: start: 20120723, end: 20130718

REACTIONS (1)
  - Renal haemorrhage [Recovered/Resolved]
